FAERS Safety Report 22692142 (Version 11)
Quarter: 2025Q2

REPORT INFORMATION
  Report Type: Report from Study
  Country: US (occurrence: US)
  Receive Date: 20230711
  Receipt Date: 20250430
  Transmission Date: 20250717
  Serious: Yes (Hospitalization, Other)
  Sender: TAKEDA
  Company Number: US-TAKEDA-2023TUS067068

PATIENT
  Age: 62 Year
  Sex: Female
  Weight: 46 kg

DRUGS (29)
  1. TEDUGLUTIDE [Suspect]
     Active Substance: TEDUGLUTIDE
     Indication: Short-bowel syndrome
     Dosage: 0.22 MILLILITER, QD
  2. TEDUGLUTIDE [Suspect]
     Active Substance: TEDUGLUTIDE
     Dosage: 0.22 MILLILITER, QD
  3. TEDUGLUTIDE [Suspect]
     Active Substance: TEDUGLUTIDE
     Dosage: 0.22 MILLILITER, QD
  4. TEDUGLUTIDE [Suspect]
     Active Substance: TEDUGLUTIDE
     Dosage: 0.22 MILLILITER, QD
  5. TEDUGLUTIDE [Suspect]
     Active Substance: TEDUGLUTIDE
     Dosage: 0.22 MILLILITER, QD
  6. TEDUGLUTIDE [Suspect]
     Active Substance: TEDUGLUTIDE
     Dosage: 0.22 MILLILITER, QD
  7. VITAMIN A [Concomitant]
     Active Substance: VITAMIN A
  8. MIRTAZAPINE [Concomitant]
     Active Substance: MIRTAZAPINE
  9. COLESTIPOL HYDROCHLORIDE [Concomitant]
     Active Substance: COLESTIPOL HYDROCHLORIDE
  10. LOPERAMIDE [Concomitant]
     Active Substance: LOPERAMIDE
  11. PANTOPRAZOLE SODIUM [Concomitant]
     Active Substance: PANTOPRAZOLE SODIUM
  12. Betamethasone dipropionate, augmented [Concomitant]
  13. LIDOCAINE [Concomitant]
     Active Substance: LIDOCAINE
  14. PREDNISONE [Concomitant]
     Active Substance: PREDNISONE
  15. CYANOCOBALAMIN [Concomitant]
     Active Substance: CYANOCOBALAMIN
  16. FAMOTIDINE [Concomitant]
     Active Substance: FAMOTIDINE
  17. ONDANSETRON [Concomitant]
     Active Substance: ONDANSETRON
  18. VITAMIN D2 [Concomitant]
     Active Substance: ERGOCALCIFEROL
  19. BACLOFEN [Concomitant]
     Active Substance: BACLOFEN
  20. OMEPRAZOLE [Concomitant]
     Active Substance: OMEPRAZOLE
  21. STELARA [Concomitant]
     Active Substance: USTEKINUMAB
  22. AMITRIPTYLINE HYDROCHLORIDE [Concomitant]
     Active Substance: AMITRIPTYLINE HYDROCHLORIDE
  23. FLUTICASONE PROPIONATE [Concomitant]
     Active Substance: FLUTICASONE PROPIONATE
  24. ONDANSETRON HYDROCHLORIDE [Concomitant]
     Active Substance: ONDANSETRON HYDROCHLORIDE
  25. FOLIC ACID [Concomitant]
     Active Substance: FOLIC ACID
  26. SKYRIZI [Concomitant]
     Active Substance: RISANKIZUMAB-RZAA
  27. Thera-m [Concomitant]
  28. VITAMIN D [Concomitant]
     Active Substance: VITAMIN D NOS
  29. TPN [Concomitant]
     Active Substance: AMINO ACIDS\DEXTROSE\ELECTROLYTES NOS\SOYBEAN OIL

REACTIONS (19)
  - Crohn^s disease [Recovered/Resolved]
  - Nausea [Recovered/Resolved]
  - Self-injurious ideation [Unknown]
  - Stress [Unknown]
  - Illness [Unknown]
  - Mental disorder [Unknown]
  - Depression [Unknown]
  - Decreased immune responsiveness [Unknown]
  - Feeling abnormal [Unknown]
  - Diarrhoea [Unknown]
  - Product distribution issue [Unknown]
  - Product use issue [Unknown]
  - Product dose omission issue [Unknown]
  - Weight decreased [Unknown]
  - Appetite disorder [Unknown]
  - Sleep disorder [Unknown]
  - Decreased appetite [Unknown]
  - Headache [Unknown]
  - Vomiting [Unknown]

NARRATIVE: CASE EVENT DATE: 20230906
